FAERS Safety Report 7551037-5 (Version None)
Quarter: 2011Q2

REPORT INFORMATION
  Report Type: 
  Country: None (occurrence: None)
  Receive Date: 20110616
  Receipt Date: 20081002
  Transmission Date: 20111010
  Serious: Yes (Death, Hospitalization, Disabling, Other)
  Sender: FDA-Public Use
  Company Number: US-BAYER-200834995NA

PATIENT
  Age: 47 Year
  Sex: Male
  Weight: 116 kg

DRUGS (18)
  1. TRASYLOL [Suspect]
     Dosage: 200 ML TOTAL INFUSION
     Dates: start: 19960710, end: 19960710
  2. ANCEF [Concomitant]
     Dosage: 1 GM
     Route: 042
     Dates: start: 19960710, end: 19960710
  3. LEVOPHED [Concomitant]
     Dosage: UNK
     Route: 042
     Dates: start: 19960710, end: 19960710
  4. TOPROL-XL [Concomitant]
     Dosage: UNK
     Route: 048
  5. HEPARIN [Concomitant]
     Dosage: 10 MG PRIME PUMP
     Route: 050
     Dates: start: 19960710, end: 19960710
  6. MANNITOL [Concomitant]
     Dosage: 2.5 GMS PRIME PUMP
     Route: 050
     Dates: start: 19960710, end: 19960710
  7. OPTIRAY 350 [Concomitant]
     Dosage: 295 CC
     Dates: start: 19960624
  8. ASPIRIN [Concomitant]
  9. ALBUMEN [Concomitant]
     Dosage: 50 ML
     Route: 042
     Dates: start: 19960710, end: 19960710
  10. VALIUM [Concomitant]
     Dosage: UNK
     Route: 042
     Dates: start: 19960710, end: 19960710
  11. DOPAMINE HCL [Concomitant]
     Dosage: UNK
     Route: 042
     Dates: start: 19960710, end: 19960710
  12. TRASYLOL [Suspect]
     Indication: CORONARY ARTERY BYPASS
     Dosage: 1 ML, ONCE, INITIAL TEST DOSE
     Route: 042
     Dates: start: 19960710, end: 19960710
  13. DIGOXIN [Concomitant]
     Route: 048
  14. ANCEF [Concomitant]
     Dosage: 2 GMS IRRIGATION
     Route: 050
     Dates: start: 19960710, end: 19960710
  15. TRASYLOL [Suspect]
     Dosage: 200 ML LOADING DOSE
     Route: 042
     Dates: start: 19960710, end: 19960710
  16. HEPARIN [Concomitant]
     Dosage: UNK
     Route: 042
     Dates: start: 19960710, end: 19960710
  17. CARDIZEM [Concomitant]
     Dosage: 0.1 CC
     Route: 042
     Dates: start: 19960710, end: 19960710
  18. PROTAMINE SULFATE [Concomitant]
     Dosage: UNK
     Route: 042
     Dates: start: 19960710, end: 19960710

REACTIONS (10)
  - INJURY [None]
  - MULTI-ORGAN FAILURE [None]
  - UNEVALUABLE EVENT [None]
  - RENAL FAILURE [None]
  - EMOTIONAL DISTRESS [None]
  - ANXIETY [None]
  - FEAR [None]
  - ANHEDONIA [None]
  - PAIN [None]
  - STRESS [None]
